FAERS Safety Report 4354578-7 (Version None)
Quarter: 2004Q2

REPORT INFORMATION
  Report Type: 
  Country: None (occurrence: None)
  Receive Date: 20040506
  Receipt Date: 20040506
  Transmission Date: 20050107
  Serious: Yes (Other)
  Sender: FDA-Public Use
  Company Number: None

PATIENT
  Sex: Female
  Weight: 131.5431 kg

DRUGS (11)
  1. PLAVIX [Suspect]
     Indication: ANTICOAGULANT THERAPY
     Dosage: 75 MG 1 PER DAY ORAL
     Route: 048
     Dates: start: 20030225, end: 20030228
  2. CELEXA [Suspect]
     Indication: MAJOR DEPRESSION
     Dosage: 20 MG 1 PER DAT ORAL
     Route: 048
     Dates: start: 19990615, end: 20040505
  3. WELLBUTRIN SR [Concomitant]
  4. HYDROCHLOROTHIAZIDE [Concomitant]
  5. VERAPAMIL [Concomitant]
  6. FUROSEMIDE [Concomitant]
  7. KCL TAB [Concomitant]
  8. DIOVAN [Concomitant]
  9. AVANDIA [Concomitant]
  10. INSULIN [Concomitant]
  11. THYROID TAB [Concomitant]

REACTIONS (2)
  - CONDITION AGGRAVATED [None]
  - DEPRESSION [None]
